FAERS Safety Report 7805399-1 (Version None)
Quarter: 2011Q4

REPORT INFORMATION
  Report Type: 
  Country: None (occurrence: None)
  Receive Date: 20111010
  Receipt Date: 20111006
  Transmission Date: 20120403
  Serious: Yes (Hospitalization)
  Sender: FDA-Public Use
  Company Number: DK-PFIZER INC-2010132214

PATIENT
  Age: 46 Year
  Sex: Male

DRUGS (4)
  1. CABERGOLINE [Suspect]
     Indication: PARKINSON'S DISEASE
     Dosage: 2-8 MG DAILY
     Route: 048
     Dates: start: 19971219, end: 20090101
  2. ROPINIROLE [Suspect]
     Indication: PARKINSON'S DISEASE
     Dosage: 16 MG + 8 MG
     Route: 048
     Dates: start: 20090528
  3. MADOPAR [Concomitant]
     Indication: PARKINSON'S DISEASE
     Dosage: 125 MG, 3X/DAY
     Route: 048
     Dates: start: 19991210
  4. STALEVO 100 [Concomitant]
     Indication: PARKINSON'S DISEASE
     Dosage: 100/25/200 4 TIMES DAILY
     Route: 048
     Dates: start: 20040429

REACTIONS (3)
  - PATHOLOGICAL GAMBLING [None]
  - PULMONARY EMBOLISM [None]
  - PULMONARY ARTERIAL PRESSURE INCREASED [None]
